FAERS Safety Report 22979302 (Version 2)
Quarter: 2023Q4

REPORT INFORMATION
  Report Type: Spontaneous
  Country: FI (occurrence: FI)
  Receive Date: 20230925
  Receipt Date: 20231016
  Transmission Date: 20240110
  Serious: Yes (Other)
  Sender: FDA-Public Use
  Company Number: FI-BAYER-2023A133097

PATIENT
  Age: 20 Year
  Sex: Female

DRUGS (3)
  1. KYLEENA [Suspect]
     Active Substance: LEVONORGESTREL
     Dosage: 17.5?G/DAY
     Route: 015
     Dates: start: 20230911, end: 20230911
  2. DROSPIRENONE [Concomitant]
     Active Substance: DROSPIRENONE
     Dosage: 4 MG
  3. SERTRALINE [Concomitant]
     Active Substance: SERTRALINE HYDROCHLORIDE
     Dosage: 100 MG

REACTIONS (6)
  - Syncope [Recovering/Resolving]
  - Epilepsy [Recovering/Resolving]
  - Facial paralysis [Recovering/Resolving]
  - Hypoaesthesia [Not Recovered/Not Resolved]
  - Dizziness [Not Recovered/Not Resolved]
  - Complication of device insertion [Unknown]

NARRATIVE: CASE EVENT DATE: 20230911
